FAERS Safety Report 4372399-6 (Version None)
Quarter: 2004Q2

REPORT INFORMATION
  Report Type: 
  Country: None (occurrence: None)
  Receive Date: 20040526
  Receipt Date: 20030815
  Transmission Date: 20050107
  Serious: Yes (Other)
  Sender: FDA-Public Use
  Company Number: BE-JNJFOC-20030600107

PATIENT
  Age: 73 Year
  Sex: Male

DRUGS (5)
  1. CISAPRIDE (CISAPRIDE) TABLETS [Suspect]
     Indication: IMPAIRED GASTRIC EMPTYING
     Dosage: 10 MG, 4 IN 1 DAY, ORAL
     Route: 048
     Dates: start: 19990725, end: 20030606
  2. TILDIEM RETARD (UNKNOWN) DILTIAZEM HYDROCHLORIDE [Concomitant]
  3. NEXIAM (UNKNOWN) (ESOMEPRAZOLE) [Concomitant]
  4. CORVATARD (MOLSIDOMINE) [Concomitant]
  5. LIPITON (ATORVASTATIN) [Concomitant]

REACTIONS (3)
  - ELECTROCARDIOGRAM QT CORRECTED INTERVAL PROLONGED [None]
  - ELECTROCARDIOGRAM QT PROLONGED [None]
  - SINUS BRADYCARDIA [None]
